FAERS Safety Report 12773302 (Version 1)
Quarter: 2016Q3

REPORT INFORMATION
  Report Type: Spontaneous
  Country: US (occurrence: US)
  Receive Date: 20160922
  Receipt Date: 20160922
  Transmission Date: 20161109
  Serious: No
  Sender: FDA-Public Use
  Company Number: US-BANPHARM-20154448

PATIENT
  Age: 56 Year
  Sex: Female
  Weight: 81.65 kg

DRUGS (2)
  1. BLOOD PRESSURE PILL [Concomitant]
     Active Substance: UNSPECIFIED INGREDIENT
     Dates: start: 199307
  2. ZYRTEC [Suspect]
     Active Substance: CETIRIZINE HYDROCHLORIDE
     Indication: HYPERSENSITIVITY
     Dosage: 1 DF,
     Route: 048
     Dates: start: 20151118

REACTIONS (1)
  - Throat irritation [Recovering/Resolving]

NARRATIVE: CASE EVENT DATE: 20151118
